FAERS Safety Report 18378744 (Version 1)
Quarter: 2020Q4

REPORT INFORMATION
  Report Type: Report from Study
  Country: None (occurrence: US)
  Receive Date: 20201014
  Receipt Date: 20201014
  Transmission Date: 20210114
  Serious: Yes (Hospitalization, Other)
  Sender: FDA-Public Use
  Company Number: US-ABBVIE-19K-163-3200201-00

PATIENT
  Age: 23 Year
  Sex: Female
  Weight: 79.45 kg

DRUGS (2)
  1. HUMIRA [Suspect]
     Active Substance: ADALIMUMAB
     Indication: HIDRADENITIS
     Route: 058
     Dates: start: 201806
  2. SPIRONOLACTONE. [Concomitant]
     Active Substance: SPIRONOLACTONE
     Indication: HIDRADENITIS

REACTIONS (5)
  - Meniscus injury [Recovered/Resolved]
  - Joint stiffness [Recovered/Resolved]
  - Ligament operation [Recovered/Resolved]
  - Hidradenitis [Recovering/Resolving]
  - Knee operation [Unknown]

NARRATIVE: CASE EVENT DATE: 20191101
